FAERS Safety Report 16567514 (Version 1)
Quarter: 2019Q3

REPORT INFORMATION
  Report Type: Spontaneous
  Country: SE (occurrence: SE)
  Receive Date: 20190712
  Receipt Date: 20190712
  Transmission Date: 20191004
  Serious: Yes (Hospitalization, Other)
  Sender: FDA-Public Use
  Company Number: SE-MYLANLABS-2019M1064004

PATIENT
  Age: 62 Year
  Sex: Male

DRUGS (17)
  1. MESASAL [Concomitant]
     Dosage: UNK
  2. PREDNISONE. [Suspect]
     Active Substance: PREDNISONE
     Dosage: DOSAGE FORM: TABLET, FOR 1 WEEK
     Route: 065
     Dates: start: 20120814
  3. PREDNISONE. [Suspect]
     Active Substance: PREDNISONE
     Dosage: DOSAGE FORM: TABLET, FOR 1 WEEK
     Route: 065
     Dates: start: 20120903
  4. ASACOL [Suspect]
     Active Substance: MESALAMINE
     Indication: PRODUCT USED FOR UNKNOWN INDICATION
     Dosage: DOSAGE FORM: SUPPOSITORY
     Route: 065
     Dates: start: 20130303, end: 20130408
  5. PREDNISONE. [Suspect]
     Active Substance: PREDNISONE
     Dosage: DOSAGE FORM: TABLET, FOR 1 WEEK
     Route: 065
     Dates: start: 20121029
  6. PREDNISONE. [Suspect]
     Active Substance: PREDNISONE
     Indication: PRODUCT USED FOR UNKNOWN INDICATION
     Dosage: 10 MILLIGRAM
     Route: 065
     Dates: start: 20120628, end: 20140102
  7. PREDNISONE. [Suspect]
     Active Substance: PREDNISONE
     Dosage: DOSAGE FORM: TABLET, FOR 1 WEEK
     Route: 065
     Dates: start: 20130328
  8. REMICADE [Suspect]
     Active Substance: INFLIXIMAB
     Indication: COLITIS ULCERATIVE
     Dosage: 100 MILLIGRAM
     Route: 042
     Dates: start: 20120821, end: 20120821
  9. REMICADE [Suspect]
     Active Substance: INFLIXIMAB
     Dosage: 100 MILLIGRAM
     Route: 042
     Dates: start: 20121003, end: 20121022
  10. OMEPRAZOLE. [Concomitant]
     Active Substance: OMEPRAZOLE
     Dosage: DOSAGE FORM: TABLET
     Route: 065
     Dates: start: 20120821
  11. PREDNISONE. [Suspect]
     Active Substance: PREDNISONE
     Indication: PRODUCT USED FOR UNKNOWN INDICATION
     Dosage: DOSAGE FORM: TABLET, FOR 1 WEEK
     Route: 065
     Dates: start: 20120614
  12. CORTISONE [Concomitant]
     Active Substance: CORTISONE
     Indication: INFLAMMATION
     Dosage: DOSAGE FORM: UNSPECIFIED
     Route: 065
     Dates: start: 20120528, end: 20140102
  13. PRED-CLYSMA [Suspect]
     Active Substance: PREDNISOLONE SODIUM PHOSPHATE
     Indication: PRODUCT USED FOR UNKNOWN INDICATION
     Dosage: DOSAGE FORM: UNSPECIFIED, 31,25 MG CLYSMA  (REKTALL?SNING)
     Route: 065
     Dates: start: 20120528, end: 20121022
  14. ASACOL [Suspect]
     Active Substance: MESALAMINE
     Indication: PRODUCT USED FOR UNKNOWN INDICATION
     Dosage: DOSAGE FORM: TABLET
     Route: 065
     Dates: start: 20120628, end: 20120802
  15. REMICADE [Suspect]
     Active Substance: INFLIXIMAB
     Dosage: 100 MILLIGRAM
     Route: 042
     Dates: start: 20120907, end: 20120907
  16. IMUREL                             /00001501/ [Suspect]
     Active Substance: AZATHIOPRINE SODIUM
     Indication: PRODUCT USED FOR UNKNOWN INDICATION
     Dosage: DOSAGE FORM: FILM COATED TABLET
     Route: 048
     Dates: start: 20120813, end: 20120815
  17. LOPERAMIDE HYDROCHLORIDE. [Concomitant]
     Active Substance: LOPERAMIDE HYDROCHLORIDE
     Dosage: DOSAGE FORM: CAPSULES
     Route: 065

REACTIONS (22)
  - Hypotension [Unknown]
  - Rash [Unknown]
  - Atrial fibrillation [Unknown]
  - Cushingoid [Recovered/Resolved]
  - Fatigue [Unknown]
  - Pyrexia [Unknown]
  - Irritability [Unknown]
  - Heart rate irregular [Unknown]
  - Sensory disturbance [Unknown]
  - Pruritus [Unknown]
  - Disturbance in attention [Unknown]
  - Dry skin [Unknown]
  - Rash pruritic [Unknown]
  - Memory impairment [Unknown]
  - Muscle spasms [Unknown]
  - Back pain [Unknown]
  - Peripheral swelling [Unknown]
  - Oesophagitis [Unknown]
  - Anger [Unknown]
  - Pain in extremity [Unknown]
  - General physical condition abnormal [Unknown]
  - Paraesthesia [Unknown]

NARRATIVE: CASE EVENT DATE: 2012
